FAERS Safety Report 21943558 (Version 1)
Quarter: 2023Q1

REPORT INFORMATION
  Report Type: Other
  Country: IT (occurrence: None)
  Receive Date: 20230202
  Receipt Date: 20230202
  Transmission Date: 20230418
  Serious: Yes (Other)
  Sender: FDA-Public Use
  Company Number: None

PATIENT
  Age: 66 Year
  Sex: Male
  Weight: 105 kg

DRUGS (3)
  1. RITUXIMAB [Suspect]
     Active Substance: RITUXIMAB
     Indication: Precursor B-lymphoblastic lymphoma stage III
     Dosage: DOSAGE: 750?UNIT OF MEASURE: MILLIGRAMS
     Route: 065
  2. VINCRISTINE SULFATE [Concomitant]
     Active Substance: VINCRISTINE SULFATE
     Indication: Precursor B-lymphoblastic lymphoma stage III
     Dosage: DOSAGE: 2?UNIT OF MEASURE: MILLIGRAMS
  3. CYCLOPHOSPHAMIDE [Concomitant]
     Active Substance: CYCLOPHOSPHAMIDE
     Indication: Precursor B-lymphoblastic lymphoma stage III
     Dosage: DOSAGGIO: 1000?UNITA DI MISURA: MILLIGRAMMI

REACTIONS (2)
  - Tachycardia [Unknown]
  - Hypoxia [Unknown]

NARRATIVE: CASE EVENT DATE: 20230123
